FAERS Safety Report 21941232 (Version 1)
Quarter: 2023Q1

REPORT INFORMATION
  Report Type: Report from Study
  Country: US (occurrence: US)
  Receive Date: 20230202
  Receipt Date: 20230202
  Transmission Date: 20230418
  Serious: No
  Sender: FDA-Public Use
  Company Number: US-EXELIXIS-CABO-22053912

PATIENT
  Sex: Female

DRUGS (1)
  1. CABOMETYX [Suspect]
     Active Substance: CABOZANTINIB S-MALATE
     Indication: Renal cancer
     Dosage: 40 MG TAKE 1 TABLET BY MOUTH EVERY OTHER DAY ALTERNATING WITH ONE 60MG TABLET EVERY OTHER DAY
     Route: 048
     Dates: start: 20220107

REACTIONS (1)
  - Hepatic enzyme abnormal [Unknown]
